FAERS Safety Report 19287812 (Version 1)
Quarter: 2021Q2

REPORT INFORMATION
  Report Type: Other
  Country: US (occurrence: US)
  Receive Date: 20210521
  Receipt Date: 20210521
  Transmission Date: 20210717
  Serious: No
  Sender: FDA-Public Use
  Company Number: US-ROCHE-2828038

PATIENT
  Age: 25 Year
  Sex: Female

DRUGS (17)
  1. ABILIFY [Concomitant]
     Active Substance: ARIPIPRAZOLE
  2. KEFLEX [Concomitant]
     Active Substance: CEPHALEXIN
     Route: 048
  3. OCREVUS [Suspect]
     Active Substance: OCRELIZUMAB
     Route: 065
  4. PROAIR HFA [Concomitant]
     Active Substance: ALBUTEROL SULFATE
     Dosage: 90 MCG INTO LUNGS , EVERY 4 HOURS AS NEEDED FOR WHEEZING
  5. ZYRTEC (UNITED STATES) [Concomitant]
     Dosage: EVERY EVENING
     Route: 048
  6. TESSALON [Concomitant]
     Active Substance: BENZONATATE
     Route: 048
  7. IMITREX [Concomitant]
     Active Substance: SUMATRIPTAN SUCCINATE
  8. NEPHROCAPS [Concomitant]
     Active Substance: ASCORBIC ACID\BIOTIN\CYANOCOBALAMIN\FOLIC ACID\NIACIN\PANTOTHENIC ACID\PYRIDOXINE\RIBOFLAVIN\THIAMINE
     Dosage: DAILY
     Route: 048
  9. BENADRYL [Concomitant]
     Active Substance: DIPHENHYDRAMINE HYDROCHLORIDE
     Indication: PREMEDICATION
  10. KLONOPIN [Suspect]
     Active Substance: CLONAZEPAM
     Indication: PRODUCT USED FOR UNKNOWN INDICATION
     Route: 065
  11. OCREVUS [Suspect]
     Active Substance: OCRELIZUMAB
     Indication: MULTIPLE SCLEROSIS
     Dosage: DATE OF TREATMENT: 20/APR/2020
     Route: 065
  12. VITAMIN D [ERGOCALCIFEROL] [Concomitant]
     Active Substance: ERGOCALCIFEROL
     Indication: VITAMIN D DECREASED
     Dosage: 1250 MCG (50000 UNITS)
     Route: 048
  13. LIORESAL [Concomitant]
     Active Substance: BACLOFEN
     Route: 048
  14. SOLU?MEDROL [Concomitant]
     Active Substance: METHYLPREDNISOLONE SODIUM SUCCINATE
     Indication: PREMEDICATION
     Route: 042
  15. EXCEDRIN EXTRA STRENGTH [Concomitant]
     Active Substance: ACETAMINOPHEN\ASPIRIN\CAFFEINE
     Dosage: 250?250?65 MG
  16. PROVENTIL [Concomitant]
     Active Substance: ALBUTEROL
     Dosage: DAILY
     Route: 048
  17. DELTASONE [Concomitant]
     Active Substance: PREDNISONE
     Dosage: 6 DAYS DOSE PACK

REACTIONS (11)
  - Balance disorder [Unknown]
  - Coordination abnormal [Unknown]
  - Urinary tract infection [Unknown]
  - Optic atrophy [Unknown]
  - Anxiety [Unknown]
  - Palpitations [Unknown]
  - Cardiac valve disease [Unknown]
  - JC polyomavirus test positive [Unknown]
  - Arthralgia [Unknown]
  - Tremor [Unknown]
  - Increased tendency to bruise [Unknown]

NARRATIVE: CASE EVENT DATE: 20200701
